FAERS Safety Report 17860064 (Version 1)
Quarter: 2020Q2

REPORT INFORMATION
  Report Type: Spontaneous
  Country: US (occurrence: US)
  Receive Date: 20200604
  Receipt Date: 20200604
  Transmission Date: 20200714
  Serious: No
  Sender: FDA-Public Use
  Company Number: None

PATIENT
  Age: 44 Year
  Sex: Female

DRUGS (3)
  1. METHIMAZOLE TAB 5MG [Concomitant]
  2. TYKERB [Suspect]
     Active Substance: LAPATINIB DITOSYLATE
     Route: 043
  3. XANAX TAB 0.5MG [Concomitant]

REACTIONS (2)
  - Diarrhoea [None]
  - Dehydration [None]

NARRATIVE: CASE EVENT DATE: 20200521
